FAERS Safety Report 5007185-7 (Version None)
Quarter: 2006Q1

REPORT INFORMATION
  Report Type: 
  Country: None (occurrence: None)
  Receive Date: 20060327
  Receipt Date: 20051201
  Transmission Date: 20060701
  Serious: Yes (Hospitalization)
  Sender: FDA-Public Use
  Company Number: 220011

PATIENT
  Age: 61 Year
  Sex: Male
  Weight: 81.2 kg

DRUGS (7)
  1. AVASTIN [Suspect]
     Indication: COLON CANCER
     Dosage: 5 MG/KG, Q2W
     Route: 042
     Dates: start: 20051008, end: 20051026
  2. OXALIPATIN (OXALPATIN) [Concomitant]
  3. FLUOROURACIL [Concomitant]
  4. LEUCOVORIN (LEUCOVORIN) [Concomitant]
  5. DILANTIN [Concomitant]
  6. ZOFRAN [Concomitant]
  7. OXYCODONE (OXYCODONE) [Concomitant]

REACTIONS (1)
  - PULMONARY EMBOLISM [None]
